FAERS Safety Report 8168468-5 (Version None)
Quarter: 2012Q1

REPORT INFORMATION
  Report Type: 
  Country: None (occurrence: None)
  Receive Date: 20120227
  Receipt Date: 20120214
  Transmission Date: 20120608
  Serious: Yes (Hospitalization)
  Sender: FDA-Public Use
  Company Number: US-SANOFI-AVENTIS-A03200901534

PATIENT
  Age: 77 Year
  Sex: Male

DRUGS (11)
  1. ASPIRIN [Suspect]
     Route: 065
  2. TAXOL [Suspect]
     Indication: LUNG NEOPLASM MALIGNANT
     Route: 042
     Dates: start: 20090303, end: 20090303
  3. CARBOPLATIN [Suspect]
     Indication: LUNG NEOPLASM MALIGNANT
     Route: 042
     Dates: start: 20090303, end: 20090303
  4. THEO-DUR [Concomitant]
     Route: 065
  5. ATENOLOL AND CHLORTHALIDONE [Suspect]
     Dosage: UNIT DOSE: 75 MG
     Route: 048
  6. INVESTIGATIONAL DRUG [Suspect]
     Indication: LUNG NEOPLASM MALIGNANT
     Route: 042
     Dates: start: 20090303, end: 20090303
  7. IPRATROPIUM BROMIDE/SALBUTAMOL SULFATE [Concomitant]
     Route: 065
  8. ALBUTEROL [Concomitant]
     Route: 065
  9. ISORDIL [Concomitant]
     Route: 065
  10. ATROVENT [Concomitant]
     Route: 065
  11. METOPROLOL [Concomitant]
     Route: 065

REACTIONS (4)
  - GASTRIC ULCER [None]
  - ANAEMIA [None]
  - GASTROINTESTINAL HAEMORRHAGE [None]
  - THROMBOCYTOPENIA [None]
